FAERS Safety Report 4633218-3 (Version None)
Quarter: 2005Q2

REPORT INFORMATION
  Report Type: 
  Country: None (occurrence: None)
  Receive Date: 20050408
  Receipt Date: 20050207
  Transmission Date: 20051028
  Serious: Yes (Death, Hospitalization)
  Sender: FDA-Public Use
  Company Number: 2005RR-00460

PATIENT
  Age: 92 Year
  Sex: Female

DRUGS (2)
  1. ASPIRIN [Suspect]
     Dosage: 75 MG, QD, ORAL
     Route: 048
     Dates: start: 20040201, end: 20040925
  2. FOSAMAX [Concomitant]

REACTIONS (3)
  - CARDIAC ARREST [None]
  - HAEMATEMESIS [None]
  - OBSTRUCTION [None]
